FAERS Safety Report 7668151-6 (Version None)
Quarter: 2011Q3

REPORT INFORMATION
  Report Type: 
  Country: None (occurrence: None)
  Receive Date: 20110808
  Receipt Date: 20110802
  Transmission Date: 20111222
  Serious: Yes (Death)
  Sender: FDA-Public Use
  Company Number: BE-PFIZER INC-2011174321

PATIENT
  Age: 62 Year
  Sex: Male
  Weight: 104 kg

DRUGS (9)
  1. DYTAC [Concomitant]
     Indication: URINARY TRACT DISORDER
     Dosage: 50 MG, UNK
     Dates: start: 19980815
  2. LASIX [Concomitant]
     Indication: URINARY TRACT DISORDER
     Dosage: 40 MG, UNK
     Dates: start: 19980515
  3. LANOXIN [Concomitant]
     Indication: TACHYCARDIA
     Dosage: 0.25 MG, 1X/DAY
     Dates: start: 19980515
  4. TESTOSTERONE [Concomitant]
     Indication: GONADOTROPHIN DEFICIENCY
     Dosage: UNK
     Dates: start: 19991122
  5. HYDROCORTISONE [Concomitant]
     Indication: BLOOD CORTICOTROPHIN DECREASED
     Dosage: 40 MG, 1X/DAY
     Dates: start: 20001113
  6. TESTOSTERONE [Concomitant]
     Indication: HYPOGONADISM
  7. SOMATROPIN RDNA [Suspect]
     Indication: HYPOPITUITARISM
     Dosage: 0.2 MG, 1X/DAY
     Route: 058
     Dates: start: 19961121
  8. ACCOLATE [Concomitant]
     Indication: LUNG DISORDER
     Dosage: 20 MG, 1X/DAY
     Dates: start: 20000313
  9. BRICANYL [Concomitant]
     Indication: LUNG DISORDER
     Dosage: 5 MG, 2X/DAY
     Dates: start: 19980815

REACTIONS (2)
  - DEATH [None]
  - RESPIRATORY FAILURE [None]
